FAERS Safety Report 6600857-X (Version None)
Quarter: 2010Q1

REPORT INFORMATION
  Report Type: 
  Country: None (occurrence: None)
  Receive Date: 20100223
  Receipt Date: 20100223
  Transmission Date: 20100710
  Serious: Yes (Life-Threatening, Disabling, Other)
  Sender: FDA-Public Use
  Company Number: None

PATIENT
  Sex: Male
  Weight: 90.7194 kg

DRUGS (2)
  1. ABILIFY [Suspect]
     Indication: DEPRESSION
     Dosage: 10 MG 1 AT BEDTIME P.O.
     Route: 048
     Dates: start: 20090604, end: 20090712
  2. ABILIFY [Suspect]
     Indication: OFF LABEL USE
     Dosage: 10 MG 1 AT BEDTIME P.O.
     Route: 048
     Dates: start: 20090604, end: 20090712

REACTIONS (3)
  - BLOOD GLUCOSE INCREASED [None]
  - CHEST PAIN [None]
  - FALL [None]
